FAERS Safety Report 4344331-2 (Version None)
Quarter: 2004Q2

REPORT INFORMATION
  Report Type: 
  Country: None (occurrence: None)
  Receive Date: 20040420
  Receipt Date: 20040405
  Transmission Date: 20050107
  Serious: Yes (Life-Threatening, Hospitalization)
  Sender: FDA-Public Use
  Company Number: FR-SHR-04-023557

PATIENT
  Age: 74 Year
  Sex: Female

DRUGS (4)
  1. FLUDARA [Suspect]
     Indication: CHRONIC LYMPHOCYTIC LEUKAEMIA
     Dosage: 45 MG, CYCLE X 5 D, INTRAVENOUS
     Route: 042
     Dates: start: 20030703, end: 20030807
  2. ENDOXAN [Concomitant]
  3. BACTRIM [Concomitant]
  4. VALACYCLOVIR HCL [Concomitant]

REACTIONS (7)
  - COOMBS POSITIVE HAEMOLYTIC ANAEMIA [None]
  - DISSEMINATED INTRAVASCULAR COAGULATION [None]
  - DRUG INEFFECTIVE [None]
  - FOLLICLE CENTRE LYMPHOMA, FOLLICULAR GRADE I, II, III [None]
  - GENERAL PHYSICAL HEALTH DETERIORATION [None]
  - LEUKOCYTOSIS [None]
  - LYMPHOCYTOSIS [None]
